FAERS Safety Report 5708932-9 (Version None)
Quarter: 2008Q2

REPORT INFORMATION
  Report Type: 
  Country: None (occurrence: None)
  Receive Date: 20080416
  Receipt Date: 20080402
  Transmission Date: 20081010
  Serious: Yes (Death)
  Sender: FDA-Public Use
  Company Number: B0515981A

PATIENT
  Sex: 0

DRUGS (2)
  1. PAROXETINE HYDROCHLORIDE (FORMULATION UNKNOWN) (GENERIC) [Suspect]
  2. METHADONE HYDROCHLORIDE  (FORMULATION UNKNOWN) (GENERIC) [Suspect]

REACTIONS (1)
  - DRUG TOXICITY [None]
